FAERS Safety Report 7785205-4 (Version None)
Quarter: 2011Q3

REPORT INFORMATION
  Report Type: 
  Country: None (occurrence: None)
  Receive Date: 20110929
  Receipt Date: 20110922
  Transmission Date: 20111222
  Serious: Yes (Death, Hospitalization)
  Sender: FDA-Public Use
  Company Number: FR-SP-2011-09085

PATIENT
  Sex: Male

DRUGS (3)
  1. IMMUCYST [Suspect]
     Route: 043
  2. IMMUCYST [Suspect]
     Route: 043
     Dates: start: 20110505, end: 20110505
  3. IMMUCYST [Suspect]
     Indication: URINARY BLADDER POLYP
     Route: 043

REACTIONS (10)
  - MULTI-ORGAN FAILURE [None]
  - CHEST DISCOMFORT [None]
  - MYCOBACTERIAL INFECTION [None]
  - PYREXIA [None]
  - DYSURIA [None]
  - EMPHYSEMA [None]
  - HISTIOCYTOSIS HAEMATOPHAGIC [None]
  - RESPIRATORY DISTRESS [None]
  - HAEMOPTYSIS [None]
  - CHILLS [None]
